FAERS Safety Report 4747928-0 (Version None)
Quarter: 2005Q3

REPORT INFORMATION
  Report Type: 
  Country: None (occurrence: None)
  Receive Date: 20050816
  Receipt Date: 20050808
  Transmission Date: 20060218
  Serious: Yes (Death)
  Sender: FDA-Public Use
  Company Number: 163-20785-05050317

PATIENT
  Age: 78 Year
  Sex: Male

DRUGS (1)
  1. THALOMID [Suspect]
     Indication: MULTIPLE MYELOMA
     Dosage: 150 MG, AT BEDTIME, ORAL
     Route: 048
     Dates: start: 20050421, end: 20050501

REACTIONS (4)
  - AORTIC VALVE DISEASE [None]
  - DISEASE PROGRESSION [None]
  - HYPERCALCAEMIA [None]
  - MULTIPLE MYELOMA [None]
